FAERS Safety Report 21619920 (Version 5)
Quarter: 2024Q1

REPORT INFORMATION
  Report Type: Spontaneous
  Country: JP (occurrence: JP)
  Receive Date: 20221121
  Receipt Date: 20240310
  Transmission Date: 20240410
  Serious: Yes (Other)
  Sender: FDA-Public Use
  Company Number: JP-TAKEDA-2022TJP037197AA

PATIENT
  Age: 67 Year
  Sex: Female

DRUGS (2)
  1. ALUNBRIG [Suspect]
     Active Substance: BRIGATINIB
     Indication: Lung neoplasm malignant
     Dosage: 90 MILLIGRAM, QD
     Route: 048
     Dates: start: 20220329, end: 20220616
  2. ALUNBRIG [Suspect]
     Active Substance: BRIGATINIB
     Dosage: 90 MILLIGRAM, QD
     Route: 048

REACTIONS (11)
  - Bradycardia [Recovered/Resolved]
  - Carcinoembryonic antigen increased [Recovered/Resolved]
  - Carcinoembryonic antigen increased [Recovered/Resolved]
  - Faeces soft [Recovered/Resolved]
  - Hypertension [Recovered/Resolved]
  - Blood creatine phosphokinase increased [Recovered/Resolved]
  - Lipase increased [Recovered/Resolved]
  - Rash papular [Recovered/Resolved]
  - Hepatic function abnormal [Recovered/Resolved]
  - Blood creatine phosphokinase increased [Recovered/Resolved]
  - Arthralgia [Recovered/Resolved]

NARRATIVE: CASE EVENT DATE: 20220330
